FAERS Safety Report 15129290 (Version 1)
Quarter: 2018Q3

REPORT INFORMATION
  Report Type: Spontaneous
  Country: US (occurrence: US)
  Receive Date: 20180711
  Receipt Date: 20180711
  Transmission Date: 20181010
  Serious: Yes (Other)
  Sender: FDA-Public Use
  Company Number: US-ROCHE-2151408

PATIENT
  Age: 76 Year
  Sex: Female

DRUGS (21)
  1. RITUXAN [Suspect]
     Active Substance: RITUXIMAB
     Indication: DIFFUSE LARGE B-CELL LYMPHOMA
     Route: 065
     Dates: start: 20180104
  2. RITUXAN [Suspect]
     Active Substance: RITUXIMAB
     Route: 065
     Dates: start: 20180125
  3. ONCOVIN [Concomitant]
     Active Substance: VINCRISTINE SULFATE
     Route: 065
     Dates: start: 20180104
  4. IFOSFAMIDE. [Concomitant]
     Active Substance: IFOSFAMIDE
     Route: 065
     Dates: start: 20180308
  5. IFOSFAMIDE. [Concomitant]
     Active Substance: IFOSFAMIDE
     Route: 065
     Dates: start: 20180418
  6. FLUDEOXYGLUCOSE [Concomitant]
     Active Substance: FLUDEOXYGLUCOSE
  7. CYTARABINE. [Concomitant]
     Active Substance: CYTARABINE
     Route: 065
     Dates: start: 20180329
  8. ETOPOSIDE. [Concomitant]
     Active Substance: ETOPOSIDE
     Route: 065
     Dates: start: 20180125
  9. CYCLOPHOSPHAMIDE. [Concomitant]
     Active Substance: CYCLOPHOSPHAMIDE
     Route: 065
     Dates: start: 20180104
  10. DOXORUBICIN [Concomitant]
     Active Substance: DOXORUBICIN
     Route: 065
     Dates: start: 20180104
  11. CARBOPLATIN. [Concomitant]
     Active Substance: CARBOPLATIN
     Route: 065
     Dates: start: 20180308
  12. CYTARABINE. [Concomitant]
     Active Substance: CYTARABINE
     Route: 065
     Dates: start: 20180215
  13. PREDNISOLONE. [Concomitant]
     Active Substance: PREDNISOLONE
     Route: 065
     Dates: start: 20180125
  14. CARBOPLATIN. [Concomitant]
     Active Substance: CARBOPLATIN
     Route: 065
     Dates: start: 20180418
  15. METHOTREXATE. [Concomitant]
     Active Substance: METHOTREXATE
     Route: 065
     Dates: start: 20180329
  16. ETOPOSIDE. [Concomitant]
     Active Substance: ETOPOSIDE
     Route: 065
     Dates: start: 20180104
  17. PREDNISOLONE. [Concomitant]
     Active Substance: PREDNISOLONE
     Route: 065
     Dates: start: 20180104
  18. CYCLOPHOSPHAMIDE. [Concomitant]
     Active Substance: CYCLOPHOSPHAMIDE
     Route: 065
     Dates: start: 20180125
  19. DOXORUBICIN [Concomitant]
     Active Substance: DOXORUBICIN
     Route: 065
     Dates: start: 20180125
  20. METHOTREXATE. [Concomitant]
     Active Substance: METHOTREXATE
     Route: 065
     Dates: start: 20180215
  21. ONCOVIN [Concomitant]
     Active Substance: VINCRISTINE SULFATE
     Route: 065
     Dates: start: 20180125

REACTIONS (2)
  - Splenomegaly [Unknown]
  - Lymphadenopathy [Unknown]
